FAERS Safety Report 11779521 (Version 2)
Quarter: 2015Q4

REPORT INFORMATION
  Report Type: Spontaneous
  Country: RO (occurrence: RO)
  Receive Date: 20151125
  Receipt Date: 20151207
  Transmission Date: 20160304
  Serious: Yes (Congenital Anomaly, Other)
  Sender: FDA-Public Use
  Company Number: RO-ABBVIE-15P-135-1507773-00

PATIENT
  Sex: Female

DRUGS (1)
  1. LOPINAVIR/RITONAVIR [Suspect]
     Active Substance: LOPINAVIR\RITONAVIR
     Indication: MATERNAL EXPOSURE TIMING UNSPECIFIED
     Route: 064

REACTIONS (17)
  - Macroglossia [Unknown]
  - Thyroid hormones decreased [Unknown]
  - Congenital eyelid malformation [Unknown]
  - Atrial septal defect [Unknown]
  - Patent ductus arteriosus [Unknown]
  - Cognitive disorder [Unknown]
  - Congenital diaphragmatic hernia [Unknown]
  - Speech disorder developmental [Unknown]
  - Language disorder [Unknown]
  - Foetal exposure during pregnancy [Unknown]
  - Congenital musculoskeletal anomaly [Unknown]
  - Cardiac murmur [Unknown]
  - Blood thyroid stimulating hormone increased [Unknown]
  - Jaundice neonatal [Unknown]
  - Neck deformity [Unknown]
  - Low set ears [Unknown]
  - Dysphonia [Unknown]
